FAERS Safety Report 8968895 (Version 5)
Quarter: 2013Q2

REPORT INFORMATION
  Report Type: Spontaneous
  Country: US (occurrence: US)
  Receive Date: 20121218
  Receipt Date: 20130408
  Transmission Date: 20140414
  Serious: Yes (Other)
  Sender: FDA-Public Use
  Company Number: US-BIOGENIDEC-2012BI059607

PATIENT
  Age: 36 Year
  Sex: Female

DRUGS (7)
  1. TYSABRI [Suspect]
     Indication: MULTIPLE SCLEROSIS
     Route: 042
     Dates: start: 20120109
  2. VITAMIN D [Concomitant]
  3. CALCIUM [Concomitant]
  4. DEPO-PROVERA [Concomitant]
  5. PROBIOTIC [Concomitant]
  6. FISH OIL [Concomitant]
  7. NEURONTIN [Concomitant]

REACTIONS (5)
  - Basal cell carcinoma [Recovered/Resolved]
  - Skin disorder [Recovered/Resolved]
  - Pruritus [Recovered/Resolved]
  - Naevus haemorrhage [Recovered/Resolved]
  - Constipation [Unknown]
